FAERS Safety Report 8826430 (Version 1)
Quarter: 2012Q4

REPORT INFORMATION
  Report Type: 
  Country: DE (occurrence: DE)
  Receive Date: 20121005
  Receipt Date: 20121005
  Transmission Date: 20130627
  Serious: Yes (Other)
  Sender: FDA-Public Use
  Company Number: GXKR2012DE003094

PATIENT

DRUGS (4)
  1. CLOZAPINE [Suspect]
     Indication: SCHIZOPHRENIA
     Dosage: 500 [mg/d (100-0-200-200) ]
     Route: 048
  2. LAMICTAL ODT TAB 200MG GLAXOSMITHKLINE [Suspect]
     Indication: EPILEPSY
     Dosage: 300 mg, BID
     Route: 048
  3. KEPPRA [Suspect]
     Indication: EPILEPSY
     Dosage: 1500 mg, BID
     Route: 048
  4. NASIVIN [Concomitant]
     Indication: NASOPHARYNGITIS
     Dosage: UNK , gw 34.1 to 34.2
     Route: 045

REACTIONS (2)
  - Polyhydramnios [Recovered/Resolved]
  - Maternal exposure during pregnancy [Unknown]
